FAERS Safety Report 10211583 (Version 2)
Quarter: 2014Q2

REPORT INFORMATION
  Report Type: Spontaneous
  Country: US (occurrence: US)
  Receive Date: 20140602
  Receipt Date: 20140613
  Transmission Date: 20141212
  Serious: No
  Sender: FDA-Public Use
  Company Number: US-PFIZER INC-2014150359

PATIENT
  Age: 73 Year
  Sex: Male
  Weight: 60.32 kg

DRUGS (2)
  1. LYRICA [Suspect]
     Indication: COLITIS ULCERATIVE
     Dosage: 300 MG (2 CAPSULES OF 150 MG), 3X/DAY
  2. LORTAB [Concomitant]
     Indication: PAIN
     Dosage: ^80 MG^, 2X/DAY

REACTIONS (1)
  - Logorrhoea [Unknown]
